FAERS Safety Report 5008145-2 (Version None)
Quarter: 2006Q2

REPORT INFORMATION
  Report Type: 
  Country: None (occurrence: None)
  Receive Date: 20060404
  Receipt Date: 20050913
  Transmission Date: 20061013
  Serious: Yes (Other)
  Sender: FDA-Public Use
  Company Number: 2005127229

PATIENT
  Age: 42 Year
  Sex: Female
  Weight: 92.5338 kg

DRUGS (3)
  1. GEODON [Suspect]
     Indication: BIPOLAR DISORDER
     Dosage: 140 MG (2 IN 1 D), ORAL
     Route: 048
     Dates: start: 20040301, end: 20050912
  2. GEODON [Suspect]
     Indication: DEPRESSION
     Dosage: 140 MG (2 IN 1 D), ORAL
     Route: 048
     Dates: start: 20040301, end: 20050912
  3. WELLBUTRIN XL [Suspect]
     Indication: ILL-DEFINED DISORDER
     Dosage: 300 MG (300 MG, 1 IN 1 D), ORAL
     Route: 048
     Dates: end: 20050901

REACTIONS (1)
  - HEPATITIS C [None]
